FAERS Safety Report 21705449 (Version 3)
Quarter: 2023Q1

REPORT INFORMATION
  Report Type: Spontaneous
  Country: NL (occurrence: NL)
  Receive Date: 20221209
  Receipt Date: 20230103
  Transmission Date: 20230418
  Serious: Yes (Other)
  Sender: FDA-Public Use
  Company Number: NL-BAYER-2022P025658

PATIENT
  Age: 56 Year
  Sex: Female

DRUGS (1)
  1. MIRENA [Suspect]
     Active Substance: LEVONORGESTREL
     Dosage: 20?G/DAY
     Route: 015
     Dates: start: 20161031, end: 20220901

REACTIONS (4)
  - Device breakage [None]
  - Menopausal symptoms [None]
  - Device expulsion [Recovered/Resolved]
  - Fatigue [None]

NARRATIVE: CASE EVENT DATE: 20220901
